FAERS Safety Report 12905046 (Version 2)
Quarter: 2016Q4

REPORT INFORMATION
  Report Type: Report from Study
  Country: US (occurrence: US)
  Receive Date: 20161102
  Receipt Date: 20161118
  Transmission Date: 20170207
  Serious: Yes (Other)
  Sender: FDA-Public Use
  Company Number: US-GILEAD-2016-0240816

PATIENT
  Age: 37 Year
  Sex: Female
  Weight: 58.96 kg

DRUGS (1)
  1. LEDIPASVIR/SOFOSBUVIR [Suspect]
     Active Substance: LEDIPASVIR\SOFOSBUVIR
     Indication: HEPATITIS C
     Dosage: 1 DF, UNK
     Route: 048
     Dates: start: 201609

REACTIONS (8)
  - Nausea [Unknown]
  - Vomiting [Unknown]
  - Nail operation [Unknown]
  - Drug dose omission [Recovered/Resolved]
  - Ovarian neoplasm [Unknown]
  - Uterine leiomyoma [Unknown]
  - Polymenorrhoea [Unknown]
  - Viral infection [Unknown]

NARRATIVE: CASE EVENT DATE: 2016
